FAERS Safety Report 7533361-5 (Version None)
Quarter: 2011Q2

REPORT INFORMATION
  Report Type: 
  Country: None (occurrence: None)
  Receive Date: 20110608
  Receipt Date: 20041116
  Transmission Date: 20111010
  Serious: Yes (Death)
  Sender: FDA-Public Use
  Company Number: PHHO2004NZ11974

PATIENT
  Sex: Male

DRUGS (10)
  1. ACETAMINOPHEN [Concomitant]
     Dosage: 1 G, UNK
     Route: 048
     Dates: end: 20031124
  2. OMEPRAZOLE [Concomitant]
     Dosage: 20 MG, UNK
     Dates: end: 20031124
  3. PAROXETINE HCL [Concomitant]
     Dosage: 20 MG, UNK
     Route: 048
     Dates: end: 20031124
  4. CLOZAPINE [Suspect]
     Indication: SCHIZOPHRENIA
     Route: 048
     Dates: start: 20030922, end: 20031124
  5. CLONAZEPAM [Concomitant]
     Dosage: .5 MG, UNK
     Route: 048
     Dates: end: 20031124
  6. LACTULOSE [Concomitant]
     Dosage: 10 ML, UNK
     Route: 048
     Dates: end: 20031124
  7. ASPIRIN [Concomitant]
     Dosage: 150 MG, UNK
     Route: 048
     Dates: end: 20031124
  8. FERROUS SULFATE TAB [Concomitant]
     Dosage: 325 MG, UNK
     Route: 048
     Dates: end: 20031124
  9. OMEPRAZOLE [Concomitant]
     Dosage: 40 MG, QD
     Route: 042
     Dates: start: 20031125
  10. METOPROLOL [Concomitant]
     Dosage: 47.5 MG, UNK
     Route: 048
     Dates: end: 20031124

REACTIONS (1)
  - METASTATIC NEOPLASM [None]
